FAERS Safety Report 12177153 (Version 2)
Quarter: 2016Q2

REPORT INFORMATION
  Report Type: Spontaneous
  Country: JP (occurrence: JP)
  Receive Date: 20160315
  Receipt Date: 20160412
  Transmission Date: 20160815
  Serious: Yes (Death)
  Sender: FDA-Public Use
  Company Number: JP-AMGEN-JPNSP2016030768

PATIENT
  Age: 83 Year
  Sex: Female
  Weight: 53 kg

DRUGS (1)
  1. ENBREL [Suspect]
     Active Substance: ETANERCEPT
     Indication: RHEUMATOID ARTHRITIS
     Dosage: 25 MG, WEEKLY
     Route: 058
     Dates: start: 20070629, end: 20160129

REACTIONS (2)
  - Back pain [Unknown]
  - Sudden death [Fatal]

NARRATIVE: CASE EVENT DATE: 20160226
